FAERS Safety Report 10028544 (Version 1)
Quarter: 2014Q1

REPORT INFORMATION
  Report Type: Spontaneous
  Country: GB (occurrence: None)
  Receive Date: 20140319
  Receipt Date: 20140319
  Transmission Date: 20141002
  Serious: Yes (Hospitalization)
  Sender: FDA-Public Use
  Company Number: SYM-2014-18562

PATIENT
  Age: 30 Year
  Sex: Female

DRUGS (1)
  1. METRONIDAZOLE [Suspect]
     Indication: HELICOBACTER INFECTION
     Route: 048
     Dates: start: 20130804, end: 20130811

REACTIONS (27)
  - Arthralgia [None]
  - Joint crepitation [None]
  - Muscle enzyme increased [None]
  - Muscle twitching [None]
  - Muscle spasms [None]
  - Muscular weakness [None]
  - Hepatic pain [None]
  - Palpitations [None]
  - Liver function test abnormal [None]
  - Asthenia [None]
  - Ocular hyperaemia [None]
  - Chromaturia [None]
  - Conversion disorder [None]
  - Restlessness [None]
  - Restless legs syndrome [None]
  - Fear of death [None]
  - Facial spasm [None]
  - Dizziness [None]
  - Neck pain [None]
  - Insomnia [None]
  - Psychotic disorder [None]
  - Vision blurred [None]
  - Nausea [None]
  - Hypoaesthesia oral [None]
  - Confusional state [None]
  - Headache [None]
  - Suicidal ideation [None]
